FAERS Safety Report 24602662 (Version 1)
Quarter: 2024Q4

REPORT INFORMATION
  Report Type: Spontaneous
  Country: US (occurrence: None)
  Receive Date: 20241108
  Receipt Date: 20241108
  Transmission Date: 20250115
  Serious: Yes (Other)
  Sender: Public
  Company Number: None

PATIENT
  Age: 41 Year
  Sex: Female
  Weight: 72.45 kg

DRUGS (8)
  1. PHENYLEPHRINE [Suspect]
     Active Substance: PHENYLEPHRINE
     Indication: Nasal congestion
     Dosage: 3 SPRAY (S) EVERY 4 HOURS RESPIRTORY (INHALATION)
     Route: 055
     Dates: start: 20241006, end: 20241006
  2. BUPROPION [Concomitant]
     Active Substance: BUPROPION
  3. ZYRTEC [Concomitant]
     Active Substance: CETIRIZINE HYDROCHLORIDE
  4. HYALURONIC ACID [Concomitant]
     Active Substance: HYALURONIC ACID
  5. vitmin c [Concomitant]
  6. MENAQUINONE 6 [Concomitant]
     Active Substance: MENAQUINONE 6
  7. VITAMIN D3 [Concomitant]
     Active Substance: CHOLECALCIFEROL
  8. MAGNESIUM CHLORIDE\MAGNESIUM GLUCONATE [Concomitant]
     Active Substance: MAGNESIUM CHLORIDE\MAGNESIUM GLUCONATE

REACTIONS (6)
  - Headache [None]
  - Musculoskeletal discomfort [None]
  - Ear discomfort [None]
  - Vision blurred [None]
  - Nausea [None]
  - Paraesthesia [None]

NARRATIVE: CASE EVENT DATE: 20241006
